FAERS Safety Report 22099262 (Version 1)
Quarter: 2023Q1

REPORT INFORMATION
  Report Type: Spontaneous
  Country: US (occurrence: US)
  Receive Date: 20230315
  Receipt Date: 20230315
  Transmission Date: 20230417
  Serious: Yes (Other)
  Sender: FDA-Public Use
  Company Number: US-BAYER-2023A034090

PATIENT
  Age: 68 Year
  Sex: Male

DRUGS (1)
  1. A AND D ORIGINAL [Suspect]
     Active Substance: LANOLIN\PETROLATUM
     Dosage: ONCE A DAY EVERY FEW DAYS
     Route: 061
     Dates: end: 2023

REACTIONS (1)
  - Expired product administered [Recovered/Resolved]
